FAERS Safety Report 8933381 (Version 1)
Quarter: 2012Q4

REPORT INFORMATION
  Report Type: 
  Country: PT (occurrence: PT)
  Receive Date: 20121128
  Receipt Date: 20121128
  Transmission Date: 20130627
  Serious: Yes (Death, Hospitalization)
  Sender: FDA-Public Use
  Company Number: PT-BAXTER-2012BAX023656

PATIENT
  Sex: Female
  Weight: 90 kg

DRUGS (2)
  1. EXTRANEAL 75MG/ML - SACO - 5 UNIDADE(S) - 2000 ML [Suspect]
     Indication: AUTOMATED PERITONEAL DIALYSIS
     Route: 033
     Dates: start: 20110822
  2. PHYSIONEAL 40 GLUCOSE 2.27% W/V / 22.7 MG/ML [Suspect]
     Indication: AUTOMATED PERITONEAL DIALYSIS
     Dosage: 15 L
     Route: 033
     Dates: start: 20110822

REACTIONS (2)
  - Fluid overload [Fatal]
  - Cardiac disorder [Fatal]
